FAERS Safety Report 23853681 (Version 1)
Quarter: 2024Q2

REPORT INFORMATION
  Report Type: Spontaneous
  Country: US (occurrence: None)
  Receive Date: 20240513
  Receipt Date: 20240513
  Transmission Date: 20240715
  Serious: Yes (Other)
  Sender: FDA-Public Use
  Company Number: None

PATIENT
  Age: 68 Year
  Sex: Female
  Weight: 72 kg

DRUGS (5)
  1. HERBALS\MITRAGYNINE [Suspect]
     Active Substance: HERBALS\MITRAGYNINE
     Indication: Insomnia
     Dosage: FREQUENCY : EVERY 6 HOURS;?
     Route: 048
     Dates: start: 20180815, end: 20240422
  2. HERBALS\MITRAGYNINE [Suspect]
     Active Substance: HERBALS\MITRAGYNINE
     Indication: Anxiety
  3. daily multi vi [Concomitant]
  4. FISH OIL [Concomitant]
     Active Substance: FISH OIL
  5. otc antacid or NSAID [Concomitant]

REACTIONS (2)
  - Drug withdrawal syndrome [None]
  - Substance use [None]

NARRATIVE: CASE EVENT DATE: 20240422
